FAERS Safety Report 24438575 (Version 2)
Quarter: 2024Q4

REPORT INFORMATION
  Report Type: Spontaneous
  Country: US (occurrence: US)
  Receive Date: 20241015
  Receipt Date: 20241023
  Transmission Date: 20250114
  Serious: No
  Sender: ROCHE
  Company Number: US-ROCHE-10000104442

PATIENT
  Sex: Male

DRUGS (2)
  1. VABYSMO [Suspect]
     Active Substance: FARICIMAB-SVOA
     Indication: Neovascular age-related macular degeneration
     Dosage: INJECTION IN RIGHT EYE?HE RECEIVED HIS MOST RECENT INJECTION OF FARICIMAB IN HIS RIGHT EYE ON 09-OCT
     Route: 050
  2. EYLEA [Concomitant]
     Active Substance: AFLIBERCEPT

REACTIONS (6)
  - Visual impairment [Unknown]
  - Eye disorder [Unknown]
  - Abnormal sensation in eye [Unknown]
  - Eye swelling [Unknown]
  - Adverse drug reaction [Unknown]
  - Pain [Unknown]

NARRATIVE: CASE EVENT DATE: 20241010
